APPROVED DRUG PRODUCT: CEFEPIME HYDROCHLORIDE
Active Ingredient: CEFEPIME HYDROCHLORIDE
Strength: EQ 2GM BASE/VIAL
Dosage Form/Route: INJECTABLE;INJECTION
Application: A065441 | Product #002 | TE Code: AP
Applicant: ACS DOBFAR SPA
Approved: Mar 20, 2008 | RLD: No | RS: No | Type: RX